FAERS Safety Report 6911215-2 (Version None)
Quarter: 2010Q3

REPORT INFORMATION
  Report Type: 
  Country: None (occurrence: None)
  Receive Date: 20100806
  Receipt Date: 20100730
  Transmission Date: 20110219
  Serious: Yes (Hospitalization)
  Sender: FDA-Public Use
  Company Number: US-ABBOTT-09P-163-0589911-00

PATIENT
  Sex: Female

DRUGS (3)
  1. HUMIRA [Suspect]
     Indication: CROHN'S DISEASE
     Route: 058
     Dates: start: 20080220
  2. AZATHIOPRINE [Concomitant]
     Indication: CROHN'S DISEASE
  3. PENTASA [Concomitant]
     Indication: CROHN'S DISEASE

REACTIONS (2)
  - ABSCESS [None]
  - CROHN'S DISEASE [None]
